FAERS Safety Report 20240203 (Version 2)
Quarter: 2022Q1

REPORT INFORMATION
  Report Type: Report from Study
  Country: CA (occurrence: CA)
  Receive Date: 20211228
  Receipt Date: 20220218
  Transmission Date: 20220423
  Serious: Yes (Death, Other)
  Sender: FDA-Public Use
  Company Number: CA-HLS-202108983

PATIENT
  Age: 60 Year
  Sex: Female

DRUGS (1)
  1. CLOZARIL [Suspect]
     Active Substance: CLOZAPINE
     Indication: Product used for unknown indication
     Route: 048
     Dates: start: 20010404, end: 20220203

REACTIONS (3)
  - Neutrophilia [Unknown]
  - Death [Fatal]
  - Leukocytosis [Unknown]

NARRATIVE: CASE EVENT DATE: 20211216
